FAERS Safety Report 23054886 (Version 8)
Quarter: 2024Q4

REPORT INFORMATION
  Report Type: Report from Study
  Country: DE (occurrence: DE)
  Receive Date: 20231011
  Receipt Date: 20241108
  Transmission Date: 20250114
  Serious: Yes (Life-Threatening, Hospitalization, Other)
  Sender: EXELIXIS
  Company Number: DE-KOREA IPSEN Pharma-2023-23357

PATIENT

DRUGS (13)
  1. CABOZANTINIB [Suspect]
     Active Substance: CABOZANTINIB
     Indication: Renal cell carcinoma
     Dosage: 40 MG, QD
     Route: 048
     Dates: start: 20230912, end: 20231002
  2. CABOZANTINIB [Suspect]
     Active Substance: CABOZANTINIB
     Dosage: 20 MG, QD
     Route: 048
     Dates: start: 20231024
  3. NIVOLUMAB [Suspect]
     Active Substance: NIVOLUMAB
     Indication: Renal cell carcinoma
     Dosage: 240 MG
     Route: 042
     Dates: start: 20230925
  4. ENOXAPARIN SODIUM [Concomitant]
     Active Substance: ENOXAPARIN SODIUM
     Indication: Thrombosis
     Dosage: 40 MG/ 0,4 ML
     Route: 058
     Dates: start: 20240819, end: 20240821
  5. CEFTAZIDIME [Concomitant]
     Active Substance: CEFTAZIDIME
     Indication: Infection
     Dosage: TID - 3 TIMES PER DAY
     Route: 041
     Dates: start: 20240820, end: 20240822
  6. CEFTAZIDIME [Concomitant]
     Active Substance: CEFTAZIDIME
     Dosage: TID - 3 TIMES PER DAY
     Route: 041
     Dates: start: 20240819, end: 20240819
  7. AMLODIPINE [Concomitant]
     Active Substance: AMLODIPINE BESYLATE
     Indication: Hypertension
     Dosage: BID - TWICE PER DAY
     Route: 048
     Dates: end: 20240130
  8. PREGABALIN [Concomitant]
     Active Substance: PREGABALIN
     Indication: Neuralgia
     Dosage: BID - TWICE PER DAY
     Route: 048
     Dates: start: 20240509
  9. PREGABALIN [Concomitant]
     Active Substance: PREGABALIN
     Dosage: BID - TWICE PER DAY
     Route: 048
     Dates: end: 20240508
  10. TAMSULOSIN HYDROCHLORIDE [Concomitant]
     Active Substance: TAMSULOSIN HYDROCHLORIDE
     Indication: Benign prostatic hyperplasia
     Dosage: 0.4 MG, QD
     Route: 048
     Dates: end: 20240425
  11. RAMIPRIL [Concomitant]
     Active Substance: RAMIPRIL
     Indication: Hypertension
     Route: 048
     Dates: start: 20240304
  12. RAMIPRIL [Concomitant]
     Active Substance: RAMIPRIL
     Route: 048
     Dates: end: 20240302
  13. LACTULOSE [Concomitant]
     Active Substance: LACTULOSE
     Indication: Frequent bowel movements
     Dosage: BID - TWICE PER DAY
     Route: 048
     Dates: start: 20231107

REACTIONS (2)
  - Acute kidney injury [Not Recovered/Not Resolved]
  - Urinary tract infection [Recovered/Resolved]

NARRATIVE: CASE EVENT DATE: 20231002
